FAERS Safety Report 5128776-9 (Version None)
Quarter: 2006Q4

REPORT INFORMATION
  Report Type: 
  Country: None (occurrence: None)
  Receive Date: 20061011
  Receipt Date: 20060928
  Transmission Date: 20070319
  Serious: Yes (Death, Hospitalization, Other)
  Sender: FDA-Public Use
  Company Number: 2006120941

PATIENT
  Sex: Female

DRUGS (3)
  1. CELEBREX [Suspect]
     Dates: start: 20010101, end: 20010701
  2. BEXTRA [Suspect]
     Dates: start: 20010101, end: 20020101
  3. VIOXX [Suspect]
     Dates: start: 20010701, end: 20020101

REACTIONS (5)
  - DEEP VEIN THROMBOSIS [None]
  - MOBILITY DECREASED [None]
  - MYOCARDIAL INFARCTION [None]
  - RENAL FAILURE [None]
  - SWELLING [None]
